FAERS Safety Report 9354426 (Version 1)
Quarter: 2013Q2

REPORT INFORMATION
  Report Type: Spontaneous
  Country: IN (occurrence: IN)
  Receive Date: 20130618
  Receipt Date: 20130618
  Transmission Date: 20140414
  Serious: Yes (Other)
  Sender: FDA-Public Use
  Company Number: IN-GLAXOSMITHKLINE-A1027552A

PATIENT
  Sex: 0

DRUGS (2)
  1. NICORETTE GUM [Suspect]
     Indication: TOBACCO USER
     Route: 065
  2. NO CONCURRENT MEDICATIONS [Concomitant]

REACTIONS (4)
  - Laryngeal oedema [Unknown]
  - Pyrexia [Unknown]
  - Cough [Unknown]
  - Speech disorder [Unknown]
